FAERS Safety Report 7909314-1 (Version None)
Quarter: 2011Q4

REPORT INFORMATION
  Report Type: 
  Country: None (occurrence: None)
  Receive Date: 20111111
  Receipt Date: 20111103
  Transmission Date: 20120403
  Serious: Yes (Other)
  Sender: FDA-Public Use
  Company Number: US-NAPPMUNDI-USA-2010-0050890

PATIENT
  Sex: Female

DRUGS (2)
  1. OXYCONTIN [Suspect]
     Indication: FIBROMYALGIA
     Dosage: 160 MG, Q12H
     Dates: start: 20100914, end: 20100921
  2. OXYCONTIN [Suspect]
     Indication: IMMUNE SYSTEM DISORDER

REACTIONS (37)
  - FOREIGN BODY [None]
  - ABDOMINAL PAIN UPPER [None]
  - RASH [None]
  - MIGRAINE [None]
  - INSOMNIA [None]
  - GASTROOESOPHAGEAL REFLUX DISEASE [None]
  - SKIN CANCER [None]
  - TACHYPHRENIA [None]
  - VASCULAR INJURY [None]
  - SCAB [None]
  - PAIN [None]
  - ERUCTATION [None]
  - PRURITUS [None]
  - FLUSHING [None]
  - MANIA [None]
  - PALPITATIONS [None]
  - HEART RATE INCREASED [None]
  - CANDIDIASIS [None]
  - PRODUCT TASTE ABNORMAL [None]
  - CONFUSIONAL STATE [None]
  - DEPRESSION [None]
  - VOMITING [None]
  - BLOOD PRESSURE FLUCTUATION [None]
  - FATIGUE [None]
  - DYSARTHRIA [None]
  - MALAISE [None]
  - BASAL CELL CARCINOMA [None]
  - UNEVALUABLE EVENT [None]
  - ABDOMINAL DISTENSION [None]
  - PYREXIA [None]
  - CONSTIPATION [None]
  - DYSPNOEA [None]
  - INTENTIONAL DRUG MISUSE [None]
  - OESOPHAGEAL PAIN [None]
  - CRYING [None]
  - ABDOMINAL DISCOMFORT [None]
  - DYSPEPSIA [None]
